FAERS Safety Report 14740045 (Version 2)
Quarter: 2018Q2

REPORT INFORMATION
  Report Type: Spontaneous
  Country: BR (occurrence: BR)
  Receive Date: 20180410
  Receipt Date: 20180518
  Transmission Date: 20180711
  Serious: Yes (Hospitalization, Other)
  Sender: FDA-Public Use
  Company Number: BR-TORRENT-00004333

PATIENT
  Age: 50 Year
  Sex: Female
  Weight: 56 kg

DRUGS (5)
  1. CITALOPRAM [Concomitant]
     Active Substance: CITALOPRAM HYDROBROMIDE
     Indication: DEPRESSION
     Dosage: ONE TABLET DAILY
     Route: 048
     Dates: start: 201707
  2. RIVOTRIL [Concomitant]
     Active Substance: CLONAZEPAM
     Indication: DEPRESSION
     Dosage: ONE TABLET DAILY
     Route: 048
     Dates: start: 201707
  3. LAMOTRIGINE. [Suspect]
     Active Substance: LAMOTRIGINE
     Indication: EPILEPSY
     Dosage: ONE TABLET DAILY
     Route: 048
     Dates: start: 201707, end: 201707
  4. HYDROCHLOROTHIAZIDE. [Concomitant]
     Active Substance: HYDROCHLOROTHIAZIDE
     Indication: HYPERTENSION
     Dosage: ONE TABLET DAILY
     Route: 048
     Dates: start: 2014
  5. VALSARTAN. [Concomitant]
     Active Substance: VALSARTAN
     Indication: HYPERTENSION
     Dosage: ONE TABLET DAILY
     Route: 048
     Dates: start: 201712

REACTIONS (18)
  - Keloid scar [Unknown]
  - Eye irritation [Recovered/Resolved]
  - Alopecia [Unknown]
  - Pain [Unknown]
  - Loss of consciousness [Recovered/Resolved]
  - Amnesia [Unknown]
  - Skin exfoliation [Unknown]
  - Vision blurred [Unknown]
  - Madarosis [Recovering/Resolving]
  - Myopia [Not Recovered/Not Resolved]
  - Dry skin [Unknown]
  - Ocular hyperaemia [Recovered/Resolved]
  - Onychomadesis [Recovered/Resolved]
  - Eye disorder [Unknown]
  - Rash macular [Recovering/Resolving]
  - Throat tightness [Recovered/Resolved]
  - Temperature intolerance [Unknown]
  - Stevens-Johnson syndrome [Not Recovered/Not Resolved]

NARRATIVE: CASE EVENT DATE: 201707
